FAERS Safety Report 13470528 (Version 1)
Quarter: 2017Q2

REPORT INFORMATION
  Report Type: Spontaneous
  Country: GB (occurrence: GB)
  Receive Date: 20170424
  Receipt Date: 20170424
  Transmission Date: 20170830
  Serious: Yes (Hospitalization)
  Sender: FDA-Public Use
  Company Number: GB-DEXPHARM-20170565

PATIENT
  Age: 89 Year
  Sex: Female

DRUGS (15)
  1. FERROUS SULFATE. [Concomitant]
     Active Substance: FERROUS SULFATE
     Dosage: DAILY DOSE: 600 MG MILLGRAM(S) EVERY DAYS
  2. DOUBLEBASE [Concomitant]
     Active Substance: ISOPROPYL MYRISTATE\PARAFFIN
     Dosage: 4 TIMES DAILY
  3. SENNA [Concomitant]
     Active Substance: SENNA LEAF\SENNOSIDES\SENNOSIDES A AND B
     Dosage: 1 AT NIGHT WHEN REQUIRED.
  4. CODEINE [Concomitant]
     Active Substance: CODEINE
     Dosage: 4 TIMES A DAY
  5. PERINDOPRIL ERBUMINE. [Concomitant]
     Active Substance: PERINDOPRIL ERBUMINE
     Dosage: IN THE MORNING, SUSPENDED
  6. ACIDEX [Concomitant]
     Active Substance: CALCIUM CARBONATE\SODIUM ALGINATE\SODIUM BICARBONATE
     Dosage: 4 TIMES DAILY
  7. ADCAL-D3 [Concomitant]
     Active Substance: CALCIUM CARBONATE\CHOLECALCIFEROL
     Dosage: DAILY DOSE: 2 DF DOSAGE FORM EVERY DAYS
  8. DOCUSATE [Concomitant]
     Active Substance: DOCUSATE
     Dosage: TAKE TWO TWICE A DAY
  9. ASPIRIN. [Concomitant]
     Active Substance: ASPIRIN
     Dosage: IN THE MORNING
  10. BUTEC [Concomitant]
     Active Substance: BUPRENORPHINE
     Dosage: 20MICROGRAMS/HOUR, THURSDAY ACCORDING TO MAR
  11. OLANZAPINE. [Concomitant]
     Active Substance: OLANZAPINE
     Dosage: AT NIGHT
  12. PARACETAMOL [Concomitant]
     Active Substance: ACETAMINOPHEN
     Dosage: 2 FOUR TIMES DAILY
  13. OMEPRAZOLE. [Suspect]
     Active Substance: OMEPRAZOLE
     Dosage: DAILY DOSE: 20 MG MILLGRAM(S) EVERY DAYS
     Route: 048
  14. MIRTAZAPINE. [Concomitant]
     Active Substance: MIRTAZAPINE
     Dosage: AT NIGHT
  15. TROSPIUM [Concomitant]
     Active Substance: TROSPIUM
     Dosage: DAILY DOSE: 40 MG MILLGRAM(S) EVERY DAYS

REACTIONS (1)
  - Hypomagnesaemia [Recovered/Resolved]
